FAERS Safety Report 4401971-X (Version None)
Quarter: 2004Q2

REPORT INFORMATION
  Report Type: 
  Country: None (occurrence: None)
  Receive Date: 20040618
  Receipt Date: 20040414
  Transmission Date: 20050107
  Serious: No
  Sender: FDA-Public Use
  Company Number: US-JNJFOC-20040403471

PATIENT
  Age: 29 Year
  Sex: Female
  Weight: 60.782 kg

DRUGS (2)
  1. ORTHO EVRA [Suspect]
     Indication: CONTRACEPTION
     Dosage: 1 DOSE(S), 3 IN 4 WEEK; TRANSDERMAL
     Route: 062
  2. XANAX [Concomitant]

REACTIONS (7)
  - BREAST OEDEMA [None]
  - BREAST TENDERNESS [None]
  - METRORRHAGIA [None]
  - OEDEMA PERIPHERAL [None]
  - OTORRHOEA [None]
  - UNEXPECTED THERAPEUTIC DRUG EFFECT [None]
  - VEIN DISCOLOURATION [None]
